FAERS Safety Report 15329751 (Version 1)
Quarter: 2018Q3

REPORT INFORMATION
  Report Type: Spontaneous
  Country: CO (occurrence: CO)
  Receive Date: 20180829
  Receipt Date: 20180829
  Transmission Date: 20181010
  Serious: Yes (Death, Hospitalization)
  Sender: FDA-Public Use
  Company Number: CO-BAYER-2018-160850

PATIENT
  Age: 58 Year
  Sex: Male

DRUGS (2)
  1. ADEMPAS [Suspect]
     Active Substance: RIOCIGUAT
     Dosage: 2.5 MG, UNK
     Dates: start: 20160403, end: 20180821
  2. ADEMPAS [Suspect]
     Active Substance: RIOCIGUAT
     Dosage: 1.0 MG, UNK
     Route: 048
     Dates: start: 20160211

REACTIONS (6)
  - Dyspnoea [None]
  - Respiratory arrest [Fatal]
  - Pain [None]
  - Blood pressure decreased [None]
  - Respiratory distress [None]
  - Abdominal distension [None]

NARRATIVE: CASE EVENT DATE: 201808
